FAERS Safety Report 15733339 (Version 1)
Quarter: 2018Q4

REPORT INFORMATION
  Report Type: Spontaneous
  Country: JP (occurrence: JP)
  Receive Date: 20181218
  Receipt Date: 20181218
  Transmission Date: 20190205
  Serious: Yes (Death, Other)
  Sender: FDA-Public Use
  Company Number: JP-ASTRAZENECA-2018SF62120

PATIENT
  Age: 59 Year
  Sex: Female

DRUGS (6)
  1. GEFITINIB. [Suspect]
     Active Substance: GEFITINIB
     Indication: LUNG ADENOCARCINOMA STAGE IV
     Dosage: EIGHTH-LINE TREATMENT
     Route: 048
  2. ERLOTINIB [Suspect]
     Active Substance: ERLOTINIB
     Indication: LUNG ADENOCARCINOMA STAGE IV
     Dosage: FOURTH-LINE TREATMENT
  3. ERLOTINIB [Suspect]
     Active Substance: ERLOTINIB
     Indication: LUNG ADENOCARCINOMA STAGE IV
     Dosage: EIGHTH-LINE TREATMENT
  4. GEFITINIB. [Suspect]
     Active Substance: GEFITINIB
     Indication: LUNG ADENOCARCINOMA STAGE IV
     Dosage: SECOND-LINE GEFITINIB, DOWNGRADED 10 MONTHS LATER
     Route: 048
  5. DOCETAXEL. [Concomitant]
     Active Substance: DOCETAXEL
     Indication: PLEURAL EFFUSION
     Dosage: SEVENTH-LINE TREATMENT
     Dates: start: 201108
  6. GEFITINIB. [Suspect]
     Active Substance: GEFITINIB
     Indication: LUNG ADENOCARCINOMA STAGE IV
     Dosage: SIXTH-LINE TREATMENT
     Route: 048

REACTIONS (2)
  - Drug resistance [Not Recovered/Not Resolved]
  - Malignant neoplasm progression [Fatal]
